FAERS Safety Report 15996471 (Version 1)
Quarter: 2019Q1

REPORT INFORMATION
  Report Type: Spontaneous
  Country: US (occurrence: US)
  Receive Date: 20190222
  Receipt Date: 20190222
  Transmission Date: 20190418
  Serious: Yes (Hospitalization)
  Sender: FDA-Public Use
  Company Number: None

PATIENT
  Age: 48 Year
  Sex: Female

DRUGS (9)
  1. SODIUM CHLORIDE 7% NEBS [Concomitant]
  2. PULMOZYME 1MG [Concomitant]
  3. MVW D3000 MULTIVITAMIN [Concomitant]
  4. AZITHROMYCIN 250MG [Concomitant]
     Active Substance: AZITHROMYCIN ANHYDROUS
  5. XOPENEX 0.63MG NEBS [Concomitant]
  6. STERILE WATER [Concomitant]
     Active Substance: WATER
  7. KALYDECO [Suspect]
     Active Substance: IVACAFTOR
     Indication: CYSTIC FIBROSIS
     Route: 048
  8. COLISTIMETHATE 150MG [Concomitant]
     Active Substance: COLISTIMETHATE SODIUM
  9. LUNESTA [Concomitant]
     Active Substance: ESZOPICLONE

REACTIONS (1)
  - Infection [None]

NARRATIVE: CASE EVENT DATE: 20190208
